FAERS Safety Report 6239369-4 (Version None)
Quarter: 2009Q2

REPORT INFORMATION
  Report Type: 
  Country: None (occurrence: None)
  Receive Date: 20090622
  Receipt Date: 20090423
  Transmission Date: 20091009
  Serious: Yes (Hospitalization)
  Sender: FDA-Public Use
  Company Number: TR-ELI_LILLY_AND_COMPANY-TR200906003285

PATIENT
  Age: 55 Year

DRUGS (2)
  1. HUMULIN 70/30 [Suspect]
     Indication: HYPERGLYCAEMIA
     Dosage: 60 IU, EACH MORNING
     Route: 058
     Dates: start: 20030804
  2. HUMULIN 70/30 [Suspect]
     Dosage: 40 IU, EACH EVENING
     Route: 058
     Dates: start: 20030804

REACTIONS (8)
  - FATIGUE [None]
  - FEELING ABNORMAL [None]
  - HYPERGLYCAEMIA [None]
  - HYPOTENSION [None]
  - MEMORY IMPAIRMENT [None]
  - PAIN [None]
  - PARAESTHESIA [None]
  - SOMNOLENCE [None]
